FAERS Safety Report 25154066 (Version 1)
Quarter: 2025Q2

REPORT INFORMATION
  Report Type: Spontaneous
  Country: US (occurrence: US)
  Receive Date: 20250403
  Receipt Date: 20250403
  Transmission Date: 20250716
  Serious: No
  Sender: GLAXOSMITHKLINE
  Company Number: US-GSK-US2025038508

PATIENT
  Sex: Female

DRUGS (3)
  1. TRELEGY ELLIPTA [Suspect]
     Active Substance: FLUTICASONE FUROATE\UMECLIDINIUM BROMIDE\VILANTEROL TRIFENATATE
     Indication: Chronic obstructive pulmonary disease
     Dosage: 1 PUFF(S), QD (100/62.5/25 MCG)
  2. ORAJEL [Concomitant]
     Indication: Candida infection
  3. CAMPHOR\PHENOL [Concomitant]
     Active Substance: CAMPHOR\PHENOL
     Indication: Candida infection

REACTIONS (1)
  - Candida infection [Unknown]
